FAERS Safety Report 7064553-X (Version None)
Quarter: 2010Q4

REPORT INFORMATION
  Report Type: 
  Country: None (occurrence: None)
  Receive Date: 20101027
  Receipt Date: 20101022
  Transmission Date: 20110411
  Serious: Yes (Life-Threatening)
  Sender: FDA-Public Use
  Company Number: FR-PFIZER INC-2010134366

PATIENT
  Age: 30 Year
  Sex: Female

DRUGS (13)
  1. SOLU-MEDROL [Suspect]
     Dosage: 40 MG, 1X/DAY
     Route: 042
     Dates: start: 20100913, end: 20100917
  2. HOLOXAN [Suspect]
     Dosage: UNK
     Route: 042
     Dates: start: 20100913, end: 20100914
  3. ETOPOSIDE [Suspect]
     Dosage: 100 MG/5 ML
     Route: 042
     Dates: start: 20100913, end: 20100915
  4. UROMITEXAN [Suspect]
     Dosage: UNK
     Route: 042
     Dates: start: 20100913, end: 20100915
  5. ACUPAN [Suspect]
     Dosage: 20 MG/2ML
     Route: 042
     Dates: start: 20100913, end: 20100917
  6. ZOPHREN [Suspect]
     Dosage: UNK
     Route: 042
     Dates: start: 20100913, end: 20100917
  7. LYRICA [Concomitant]
  8. EMEND [Concomitant]
  9. DEROXAT [Concomitant]
  10. DUPHALAC [Concomitant]
  11. LOVENOX [Concomitant]
  12. PRIMPERAN [Concomitant]
  13. PARACETAMOL [Concomitant]

REACTIONS (1)
  - ENCEPHALOPATHY [None]
